FAERS Safety Report 9805713 (Version 1)
Quarter: 2014Q1

REPORT INFORMATION
  Report Type: Spontaneous
  Country: US (occurrence: None)
  Receive Date: 20140108
  Receipt Date: 20140108
  Transmission Date: 20141002
  Serious: Yes (Hospitalization)
  Sender: FDA-Public Use
  Company Number: None

PATIENT
  Age: 82 Year
  Sex: Male
  Weight: 69.5 kg

DRUGS (2)
  1. MORPHINE [Suspect]
     Indication: PAIN
     Route: 048
     Dates: start: 20131019, end: 20131019
  2. MORPHINE [Suspect]
     Route: 042
     Dates: start: 20131019, end: 20131019

REACTIONS (6)
  - Respiratory distress [None]
  - Fall [None]
  - Renal failure acute [None]
  - Somnolence [None]
  - Hypercapnia [None]
  - Ileus [None]
